FAERS Safety Report 8056413-2 (Version None)
Quarter: 2011Q4

REPORT INFORMATION
  Report Type: 
  Country: None (occurrence: None)
  Receive Date: 20111219
  Receipt Date: 20110215
  Transmission Date: 20120403
  Serious: Yes (Hospitalization, Other)
  Sender: FDA-Public Use
  Company Number: WAES 0910USA01928

PATIENT
  Age: 63 Year
  Sex: Female

DRUGS (12)
  1. MECLIZINE [Concomitant]
  2. XANAX [Concomitant]
  3. JANUVIA [Suspect]
     Indication: DIABETES MELLITUS
     Dosage: SEE  IMAGE
     Route: 048
     Dates: start: 20091001
  4. JANUVIA [Suspect]
     Indication: BLOOD GLUCOSE
     Dosage: SEE  IMAGE
     Route: 048
     Dates: start: 20091001
  5. JANUVIA [Suspect]
     Indication: DIABETES MELLITUS
     Dosage: SEE  IMAGE
     Route: 048
     Dates: start: 20090101, end: 20090101
  6. JANUVIA [Suspect]
     Indication: BLOOD GLUCOSE
     Dosage: SEE  IMAGE
     Route: 048
     Dates: start: 20090101, end: 20090101
  7. JANUVIA [Suspect]
     Indication: DIABETES MELLITUS
     Dosage: SEE  IMAGE
     Route: 048
     Dates: end: 20110201
  8. JANUVIA [Suspect]
     Indication: BLOOD GLUCOSE
     Dosage: SEE  IMAGE
     Route: 048
     Dates: end: 20110201
  9. JANUVIA [Suspect]
     Indication: DIABETES MELLITUS
     Dosage: SEE  IMAGE
     Route: 048
     Dates: start: 20090101, end: 20090930
  10. JANUVIA [Suspect]
     Indication: BLOOD GLUCOSE
     Dosage: SEE  IMAGE
     Route: 048
     Dates: start: 20090101, end: 20090930
  11. GLIMEPIRIDE [Concomitant]
  12. HYDROCHLORITHIAZIDE [Concomitant]

REACTIONS (3)
  - WRONG TECHNIQUE IN DRUG USAGE PROCESS [None]
  - PANCREATITIS [None]
  - ABDOMINAL DISCOMFORT [None]
